FAERS Safety Report 7583942-8 (Version None)
Quarter: 2011Q2

REPORT INFORMATION
  Report Type: 
  Country: None (occurrence: None)
  Receive Date: 20110630
  Receipt Date: 20110622
  Transmission Date: 20111010
  Serious: Yes (Other)
  Sender: FDA-Public Use
  Company Number: US-ELI_LILLY_AND_COMPANY-US201106006410

PATIENT
  Sex: Female

DRUGS (5)
  1. CRESTOR [Concomitant]
     Dosage: 10 MG, QD
     Route: 048
  2. BUPROPION HCL [Concomitant]
     Dosage: 300 MG, UNK
     Route: 048
  3. BYETTA [Suspect]
     Indication: TYPE 2 DIABETES MELLITUS
     Dosage: 5 UG, SINGLE
     Route: 058
     Dates: start: 20110621, end: 20110622
  4. ASPIRIN [Concomitant]
     Dosage: 81 MG, QD
     Route: 048
  5. METFORMIN HCL [Concomitant]
     Indication: TYPE 2 DIABETES MELLITUS
     Dosage: 1000 MG, QD
     Route: 048

REACTIONS (3)
  - PHARYNGEAL OEDEMA [None]
  - SWELLING [None]
  - EYE SWELLING [None]
